FAERS Safety Report 4860791-2 (Version None)
Quarter: 2005Q4

REPORT INFORMATION
  Report Type: 
  Country: None (occurrence: None)
  Receive Date: 20051216
  Receipt Date: 20051216
  Transmission Date: 20060501
  Serious: Yes (Death)
  Sender: FDA-Public Use
  Company Number: None

PATIENT
  Age: 36 Year
  Sex: Male
  Weight: 75 kg

DRUGS (2)
  1. DIPRIVAN [Suspect]
     Indication: REDUCTION OF INCREASED INTRACRANIAL PRESSURE
     Dosage: 100-300 MG/HR   CONTINUOUS    IV DRIP
     Route: 041
     Dates: start: 20050813, end: 20050830
  2. DIPRIVAN [Suspect]
     Indication: SEDATION
     Dosage: 100-300 MG/HR   CONTINUOUS    IV DRIP
     Route: 041
     Dates: start: 20050813, end: 20050830

REACTIONS (4)
  - ACIDOSIS [None]
  - HAEMODIALYSIS [None]
  - PROPOFOL INFUSION SYNDROME [None]
  - RENAL FAILURE ACUTE [None]
